FAERS Safety Report 8471425 (Version 2)
Quarter: 2014Q4

REPORT INFORMATION
  Report Type: Spontaneous
  Country: PT (occurrence: PT)
  Receive Date: 20120322
  Receipt Date: 20141218
  Transmission Date: 20150529
  Serious: Yes (Hospitalization)
  Sender: FDA-Public Use
  Company Number: PT-RANBAXY-2012R1-53915

PATIENT
  Age: 30 Year
  Sex: Female

DRUGS (6)
  1. HYDROCORTISONE. [Suspect]
     Active Substance: HYDROCORTISONE
     Indication: ARTHROPOD BITE
     Dosage: UNK
     Route: 042
  2. HYDROXYZINE [Concomitant]
     Active Substance: HYDROXYZINE\HYDROXYZINE HYDROCHLORIDE
     Indication: ARTHROPOD BITE
     Dosage: UNK
     Route: 065
  3. DEFLAZACORT [Suspect]
     Active Substance: DEFLAZACORT
     Dosage: UNK
     Route: 065
  4. EBASTINE [Concomitant]
     Active Substance: EBASTINE
     Indication: ARTHROPOD BITE
     Dosage: UNK
     Route: 065
  5. DEFLAZACORT [Suspect]
     Active Substance: DEFLAZACORT
     Indication: ARTHROPOD BITE
     Dosage: UNK
     Route: 048
  6. HYDROCORTISONE. [Suspect]
     Active Substance: HYDROCORTISONE
     Indication: ARTHROPOD BITE
     Dosage: UNK
     Route: 061

REACTIONS (1)
  - Hypersensitivity [Recovering/Resolving]
